FAERS Safety Report 5730642-2 (Version None)
Quarter: 2008Q2

REPORT INFORMATION
  Report Type: 
  Country: None (occurrence: None)
  Receive Date: 20080505
  Receipt Date: 20080505
  Transmission Date: 20081010
  Serious: Yes (Death)
  Sender: FDA-Public Use
  Company Number: None

PATIENT
  Sex: Female
  Weight: 113.3993 kg

DRUGS (2)
  1. RISPERDAL [Suspect]
     Indication: SCHIZOAFFECTIVE DISORDER
     Dosage: INJECTABLE EVERY TWO WEEKS SQ
     Route: 058
     Dates: start: 20080415, end: 20080415
  2. RISPERDAL [Suspect]
     Indication: SCHIZOAFFECTIVE DISORDER
     Dosage: DK BID PO
     Route: 048
     Dates: start: 20080415, end: 20080427

REACTIONS (9)
  - CARDIAC ARREST [None]
  - COMA [None]
  - DYSPNOEA [None]
  - HYPERHIDROSIS [None]
  - ILL-DEFINED DISORDER [None]
  - INSOMNIA [None]
  - METABOLIC ACIDOSIS [None]
  - SUICIDAL IDEATION [None]
  - VOMITING [None]
